FAERS Safety Report 10184639 (Version 1)
Quarter: 2014Q2

REPORT INFORMATION
  Report Type: Spontaneous
  Country: US (occurrence: None)
  Receive Date: 20140519
  Receipt Date: 20140519
  Transmission Date: 20141212
  Serious: Yes (Hospitalization)
  Sender: FDA-Public Use
  Company Number: PP-AE14-000224

PATIENT
  Age: 3 Year
  Sex: Female

DRUGS (1)
  1. PEDIACARE MULTI-SYMPTOM COLD PLUS ACETAMINOPHEN [Suspect]
     Indication: ACCIDENTAL EXPOSURE TO PRODUCT
     Dosage: SINGLE USE
     Route: 048
     Dates: start: 20140419

REACTIONS (3)
  - Overdose [None]
  - Accidental exposure to product by child [None]
  - Exposure via ingestion [None]
